FAERS Safety Report 20043755 (Version 1)
Quarter: 2021Q4

REPORT INFORMATION
  Report Type: Spontaneous
  Country: US (occurrence: None)
  Receive Date: 20211108
  Receipt Date: 20211108
  Transmission Date: 20220303
  Serious: Yes (Other)
  Sender: FDA-Public Use
  Company Number: US-Hikma Pharmaceuticals USA Inc.-US-H14001-21-04675

PATIENT
  Age: 65 Year
  Sex: Female
  Weight: 80.29 kg

DRUGS (10)
  1. DEXAMETHASONE [Suspect]
     Active Substance: DEXAMETHASONE
     Indication: Product used for unknown indication
     Dosage: UNKNOWN
     Route: 065
  2. DEXAMETHASONE [Suspect]
     Active Substance: DEXAMETHASONE
     Dosage: UNKNOWN
     Route: 065
     Dates: start: 20210816
  3. IBRANCE [Suspect]
     Active Substance: PALBOCICLIB
     Indication: Breast cancer
     Dosage: 125 MG ONCE A DAY FOR THREE WEEKS ON, THEN OFF SEVEN DAYS
     Route: 048
     Dates: start: 202109
  4. LEVEMIR [Suspect]
     Active Substance: INSULIN DETEMIR
     Indication: Product used for unknown indication
     Dates: start: 20210811, end: 20210829
  5. METFORMIN [Suspect]
     Active Substance: METFORMIN HYDROCHLORIDE
     Indication: Product used for unknown indication
     Dosage: UNKNOWN
     Route: 065
  6. LETROZOLE [Concomitant]
     Active Substance: LETROZOLE
     Indication: Hormone suppression therapy
     Route: 048
     Dates: start: 202109
  7. LOSARTAN [Concomitant]
     Active Substance: LOSARTAN
     Indication: Hypertension
     Route: 048
     Dates: start: 20210811
  8. AMLODIPINE [Concomitant]
     Active Substance: AMLODIPINE BESYLATE
     Indication: Hypertension
     Route: 048
     Dates: start: 20210811
  9. VITAMIN D [Concomitant]
     Active Substance: VITAMIN D NOS
     Indication: Product used for unknown indication
     Route: 048
  10. LISINOPRIL [Concomitant]
     Active Substance: LISINOPRIL
     Indication: Hypertension
     Dosage: UNKNOWN
     Route: 065

REACTIONS (18)
  - Cough [Unknown]
  - Diabetes mellitus [Unknown]
  - Blood glucose decreased [Recovered/Resolved]
  - Weight increased [Unknown]
  - Increased appetite [Unknown]
  - Central obesity [Unknown]
  - Hyperphagia [Unknown]
  - Joint swelling [Recovering/Resolving]
  - Swelling [Recovering/Resolving]
  - Peripheral swelling [Recovering/Resolving]
  - Pain in extremity [Unknown]
  - Arthralgia [Unknown]
  - Dysstasia [Unknown]
  - Gait disturbance [Unknown]
  - Condition aggravated [Unknown]
  - Fluid retention [Unknown]
  - Joint noise [Unknown]
  - Discomfort [Unknown]

NARRATIVE: CASE EVENT DATE: 20210829
